FAERS Safety Report 8696103 (Version 2)
Quarter: 2013Q4

REPORT INFORMATION
  Report Type: Spontaneous
  Country: TR (occurrence: TR)
  Receive Date: 20120801
  Receipt Date: 20131107
  Transmission Date: 20140711
  Serious: Yes (Other)
  Sender: FDA-Public Use
  Company Number: TR-009507513-1207TUR012440

PATIENT
  Age: 33 Year
  Sex: Male
  Weight: 70 kg

DRUGS (1)
  1. PEGINTRON [Suspect]
     Indication: CHRONIC HEPATITIS B
     Dosage: 100 MICROGRAM, QW
     Route: 058
     Dates: start: 20120203

REACTIONS (2)
  - Skin necrosis [Not Recovered/Not Resolved]
  - Off label use [Not Recovered/Not Resolved]
